FAERS Safety Report 16738865 (Version 2)
Quarter: 2019Q3

REPORT INFORMATION
  Report Type: Report from Study
  Country: None (occurrence: NL)
  Receive Date: 20190826
  Receipt Date: 20190926
  Transmission Date: 20191005
  Serious: No
  Sender: FDA-Public Use
  Company Number: NL-ABBVIE-16P-114-1765492-00

PATIENT
  Age: 66 Year
  Sex: Male
  Weight: 98 kg

DRUGS (10)
  1. DUODOPA [Suspect]
     Active Substance: CARBIDOPA\LEVODOPA
     Indication: PARKINSON^S DISEASE
     Dosage: MORNING DOSE: 9, CONTINUOUS DOSE: 3 , EXTRA DOSE:  1.5
     Route: 050
     Dates: start: 20161003
  2. DUODOPA [Suspect]
     Active Substance: CARBIDOPA\LEVODOPA
     Dosage: MORNING DOSE: 8.5, CONTINUOUS DOSE: 3.2 , EXTRA DOSE:  1.5
     Route: 050
  3. NEUPRO [Suspect]
     Active Substance: ROTIGOTINE
     Indication: PARKINSON^S DISEASE
     Route: 062
  4. FLU VACCINE [Suspect]
     Active Substance: INFLUENZA VIRUS VACCINE
     Indication: PRODUCT USED FOR UNKNOWN INDICATION
     Route: 065
  5. MACROGOL [Concomitant]
     Active Substance: POLYETHYLENE GLYCOLS
     Indication: ABNORMAL FAECES
  6. DUODOPA [Suspect]
     Active Substance: CARBIDOPA\LEVODOPA
     Dosage: MORNING DOSE: 9, CONTINUOUS DOSE: 3.2 , EXTRA DOSE:  1.5
     Route: 050
  7. NEUPRO [Suspect]
     Active Substance: ROTIGOTINE
     Route: 065
  8. RIVASTIGMINE. [Concomitant]
     Active Substance: RIVASTIGMINE
     Indication: PRODUCT USED FOR UNKNOWN INDICATION
     Dosage: 9.5 MG/24 HOURS
  9. DUODOPA [Suspect]
     Active Substance: CARBIDOPA\LEVODOPA
     Dosage: MORNING DOSE: 8.5, CONTINUOUS DOSE: 3.2 , EXTRA DOSE:  1.5?16 HOUR ADMINISTRATION
     Route: 050
  10. MADOPAR [Concomitant]
     Active Substance: BENSERAZIDE HYDROCHLORIDE\LEVODOPA
     Indication: PARKINSON^S DISEASE
     Route: 048

REACTIONS (25)
  - Abnormal dreams [Recovered/Resolved]
  - Bradykinesia [Not Recovered/Not Resolved]
  - Gait disturbance [Not Recovered/Not Resolved]
  - Parkinson^s disease [Not Recovered/Not Resolved]
  - Therapeutic product effect variable [Not Recovered/Not Resolved]
  - Product use complaint [Not Recovered/Not Resolved]
  - Hallucination, auditory [Recovered/Resolved]
  - Musculoskeletal stiffness [Recovered/Resolved]
  - Middle insomnia [Not Recovered/Not Resolved]
  - On and off phenomenon [Recovered/Resolved]
  - Sleep disorder [Recovered/Resolved]
  - Muscle rigidity [Not Recovered/Not Resolved]
  - Snoring [Not Recovered/Not Resolved]
  - Dyskinesia [Unknown]
  - Dystonia [Not Recovered/Not Resolved]
  - Depressed mood [Not Recovered/Not Resolved]
  - Hallucination, visual [Recovered/Resolved]
  - Mobility decreased [Not Recovered/Not Resolved]
  - Nocturia [Not Recovered/Not Resolved]
  - Weight decreased [Unknown]
  - Fatigue [Not Recovered/Not Resolved]
  - Therapeutic product effect incomplete [Not Recovered/Not Resolved]
  - On and off phenomenon [Not Recovered/Not Resolved]
  - Tremor [Not Recovered/Not Resolved]
  - Freezing phenomenon [Not Recovered/Not Resolved]

NARRATIVE: CASE EVENT DATE: 20161016
